FAERS Safety Report 7183034-6 (Version None)
Quarter: 2010Q4

REPORT INFORMATION
  Report Type: 
  Country: None (occurrence: None)
  Receive Date: 20101222
  Receipt Date: 20101220
  Transmission Date: 20110411
  Serious: No
  Sender: FDA-Public Use
  Company Number: US-PFIZER INC-2010176170

PATIENT
  Sex: Male
  Weight: 49.887 kg

DRUGS (2)
  1. ZOLOFT [Suspect]
     Indication: OBSESSIVE-COMPULSIVE DISORDER
     Dosage: 50 MG, 1X/DAY
     Route: 048
     Dates: start: 20101001
  2. ACETAMINOPHEN [Concomitant]
     Dosage: UNK

REACTIONS (2)
  - INSOMNIA [None]
  - MIDDLE INSOMNIA [None]
